FAERS Safety Report 22918274 (Version 7)
Quarter: 2024Q3

REPORT INFORMATION
  Report Type: Other
  Country: US (occurrence: US)
  Receive Date: 20230907
  Receipt Date: 20240808
  Transmission Date: 20241017
  Serious: Yes (Other)
  Sender: TRAVERE THERAPEUTICS
  Company Number: US-TRAVERE-2023TVT00398

PATIENT
  Age: 52 Year
  Sex: Female

DRUGS (2)
  1. FILSPARI [Suspect]
     Active Substance: SPARSENTAN
     Indication: Chronic kidney disease
     Route: 048
     Dates: start: 202306
  2. FILSPARI [Suspect]
     Active Substance: SPARSENTAN
     Indication: IgA nephropathy
     Route: 048

REACTIONS (7)
  - Renal impairment [None]
  - Gastroenteritis viral [Unknown]
  - Headache [Unknown]
  - Cough [Recovered/Resolved]
  - Hypersensitivity [Unknown]
  - Dermatitis contact [Unknown]
  - Back pain [None]
